FAERS Safety Report 11181111 (Version 1)
Quarter: 2015Q2

REPORT INFORMATION
  Report Type: Spontaneous
  Country: US (occurrence: US)
  Receive Date: 20150611
  Receipt Date: 20150611
  Transmission Date: 20150821
  Serious: Yes (Hospitalization)
  Sender: FDA-Public Use
  Company Number: US-009507513-1506USA004314

PATIENT
  Age: 67 Year
  Sex: Male

DRUGS (1)
  1. CRIXIVAN [Suspect]
     Active Substance: INDINAVIR SULFATE
     Route: 048

REACTIONS (1)
  - Nephrolithiasis [Unknown]
